FAERS Safety Report 20679692 (Version 1)
Quarter: 2022Q2

REPORT INFORMATION
  Report Type: Report from Study
  Country: FR (occurrence: FR)
  Receive Date: 20220406
  Receipt Date: 20220406
  Transmission Date: 20220720
  Serious: Yes (Other)
  Sender: FDA-Public Use
  Company Number: FR-LUNDBECK-DKLU3046420

PATIENT
  Age: 39 Year
  Sex: Male
  Weight: 59.1 kg

DRUGS (1)
  1. EPTINEZUMAB [Suspect]
     Active Substance: EPTINEZUMAB
     Indication: Cluster headache
     Route: 042
     Dates: start: 20220328, end: 20220328

REACTIONS (1)
  - Hypersensitivity [Recovered/Resolved]

NARRATIVE: CASE EVENT DATE: 20220328
